FAERS Safety Report 8880066 (Version 2)
Quarter: 2015Q3

REPORT INFORMATION
  Report Type: Spontaneous
  Country: US (occurrence: US)
  Receive Date: 20121031
  Receipt Date: 20150710
  Transmission Date: 20151125
  Serious: Yes (Hospitalization)
  Sender: FDA-Public Use
  Company Number: US-ASTRAZENECA-2012SE81094

PATIENT
  Age: 77 Year
  Sex: Female
  Weight: 104.3 kg

DRUGS (11)
  1. BABY ASPIRIN [Concomitant]
     Active Substance: ASPIRIN
     Indication: ANTICOAGULANT THERAPY
     Route: 048
     Dates: start: 2011
  2. NEXIUM [Suspect]
     Active Substance: ESOMEPRAZOLE MAGNESIUM
     Indication: GASTROOESOPHAGEAL REFLUX DISEASE
     Route: 048
  3. NEXIUM [Suspect]
     Active Substance: ESOMEPRAZOLE MAGNESIUM
     Indication: HIATUS HERNIA
     Route: 048
  4. NEXIUM [Suspect]
     Active Substance: ESOMEPRAZOLE MAGNESIUM
     Indication: GASTROOESOPHAGEAL REFLUX DISEASE
     Dosage: 40MG, 2 A DAY MAYBE 2-3 TIMES A MONTH
     Route: 048
     Dates: start: 201506
  5. COREG [Concomitant]
     Active Substance: CARVEDILOL
     Indication: BLOOD PRESSURE ABNORMAL
     Route: 048
     Dates: start: 2012
  6. NEXIUM [Suspect]
     Active Substance: ESOMEPRAZOLE MAGNESIUM
     Indication: HIATUS HERNIA
     Dosage: 40MG, 2 A DAY MAYBE 2-3 TIMES A MONTH
     Route: 048
     Dates: start: 201506
  7. GLIMEPIRIDE. [Concomitant]
     Active Substance: GLIMEPIRIDE
     Indication: BLOOD GLUCOSE ABNORMAL
     Route: 048
     Dates: start: 2014
  8. PROBIOTICS OTC [Concomitant]
  9. SYNTHROID [Concomitant]
     Active Substance: LEVOTHYROXINE SODIUM
     Indication: THYROID DISORDER
     Route: 048
     Dates: start: 2011
  10. HYDRA-LAVINE HCL [Concomitant]
     Indication: BLOOD PRESSURE ABNORMAL
     Route: 048
     Dates: start: 2012
  11. VITAMIN B12 [Concomitant]
     Active Substance: CYANOCOBALAMIN
     Indication: VITAMIN B12 DECREASED
     Dosage: MONTHLY
     Route: 030
     Dates: start: 2011

REACTIONS (9)
  - Choking [Unknown]
  - Hypertension [Unknown]
  - Intentional product misuse [Unknown]
  - Product use issue [Unknown]
  - Drug dose omission [Unknown]
  - Off label use [Unknown]
  - Chest discomfort [Unknown]
  - Vitamin D decreased [Unknown]
  - Memory impairment [Unknown]

NARRATIVE: CASE EVENT DATE: 2012
